FAERS Safety Report 18311021 (Version 1)
Quarter: 2020Q3

REPORT INFORMATION
  Report Type: Spontaneous
  Country: GB (occurrence: GB)
  Receive Date: 20200925
  Receipt Date: 20200925
  Transmission Date: 20201103
  Serious: Yes (Disabling)
  Sender: FDA-Public Use
  Company Number: GB-TEVA-2020-GB-1830406

PATIENT
  Age: 75 Year
  Sex: Female
  Weight: 84 kg

DRUGS (10)
  1. SOLIFENACIN [Concomitant]
     Active Substance: SOLIFENACIN
     Dosage: 1 DF
     Dates: start: 20191219, end: 20200617
  2. MIRABEGRON [Concomitant]
     Active Substance: MIRABEGRON
     Dosage: 1 DF
     Dates: start: 20200617
  3. EXEMESTANE. [Concomitant]
     Active Substance: EXEMESTANE
     Dosage: 1 DF
     Dates: start: 20191219
  4. MADOPAR [Concomitant]
     Active Substance: BENSERAZIDE HYDROCHLORIDE\LEVODOPA
     Dosage: 10 DF, AS PER PARKINSON...
     Route: 048
     Dates: start: 20191219
  5. CODEINE PHOSPHATE [Concomitant]
     Active Substance: CODEINE PHOSPHATE
     Dosage: 1 DF, UP TO 4 TIMES DAY
     Dates: start: 20191219
  6. MACROGOL [Concomitant]
     Active Substance: POLYETHYLENE GLYCOLS
     Dosage: 1 DF, UP TO ONCE A DAY
     Dates: start: 20191219
  7. PARACETAMOL [Concomitant]
     Active Substance: ACETAMINOPHEN
     Dosage: 8 DF
     Dates: start: 20200413
  8. DONEPEZIL HYDROCHLORIDE. [Suspect]
     Active Substance: DONEPEZIL HYDROCHLORIDE
     Dosage: 5 MILLIGRAM DAILY; AT BEDTIME
     Route: 048
     Dates: start: 20200804
  9. CASSIA [Concomitant]
     Dosage: TAKE 1 OR 2 AT NIGHT
     Dates: start: 20191219
  10. LACTULOSE. [Concomitant]
     Active Substance: LACTULOSE
     Dosage: 15 ML, UP TO TWICE DAILY
     Dates: start: 20191219

REACTIONS (3)
  - Dyskinesia [Recovered/Resolved]
  - Limb discomfort [Unknown]
  - Muscle twitching [Unknown]

NARRATIVE: CASE EVENT DATE: 20200825
